FAERS Safety Report 21490443 (Version 1)
Quarter: 2022Q4

REPORT INFORMATION
  Report Type: Spontaneous
  Country: US (occurrence: None)
  Receive Date: 20221021
  Receipt Date: 20221021
  Transmission Date: 20230113
  Serious: No
  Sender: FDA-Public Use
  Company Number: US-SUPERNUS Pharmaceuticals, Inc.-SUP202209-002905

PATIENT
  Age: 41 Year
  Sex: Male

DRUGS (2)
  1. QELBREE [Suspect]
     Active Substance: VILOXAZINE HYDROCHLORIDE
     Indication: Product used for unknown indication
  2. QELBREE [Suspect]
     Active Substance: VILOXAZINE HYDROCHLORIDE

REACTIONS (6)
  - Intentional self-injury [Unknown]
  - Dizziness [Unknown]
  - Withdrawal syndrome [Unknown]
  - Headache [Unknown]
  - Nausea [Unknown]
  - Aggression [Unknown]
